FAERS Safety Report 8394583-7 (Version None)
Quarter: 2012Q1

REPORT INFORMATION
  Report Type: 
  Country: None (occurrence: None)
  Receive Date: 20120323
  Receipt Date: 20110804
  Transmission Date: 20120608
  Serious: Yes (Disabling)
  Sender: FDA-Public Use
  Company Number: 163-21880-11050619

PATIENT
  Age: 70 Year
  Sex: Female

DRUGS (8)
  1. REVLIMID [Suspect]
     Indication: MYELODYSPLASTIC SYNDROME
     Dosage: 10 MG, 1 IN 1 D, PO
     Route: 048
     Dates: start: 20110222, end: 20110315
  2. REVLIMID [Suspect]
     Indication: MYELODYSPLASTIC SYNDROME
     Dosage: 10 MG, 1 IN 1 D, PO
     Route: 048
     Dates: end: 20110428
  3. HYDROXYZINE [Concomitant]
  4. REVLIMID [Suspect]
  5. FUROSEMIDE [Concomitant]
  6. ASCORBIC ACID [Concomitant]
  7. ASPIRIN [Concomitant]
  8. TESSALON [Concomitant]

REACTIONS (1)
  - RASH [None]
